FAERS Safety Report 5688715-9 (Version None)
Quarter: 2008Q1

REPORT INFORMATION
  Report Type: 
  Country: None (occurrence: None)
  Receive Date: 20080331
  Receipt Date: 20080325
  Transmission Date: 20080703
  Serious: Yes (Death, Hospitalization, Other)
  Sender: FDA-Public Use
  Company Number: US-MERCK-0608USA01320

PATIENT
  Age: 70 Year
  Sex: Female

DRUGS (3)
  1. FOSAMAX [Suspect]
     Indication: OSTEOPOROSIS
     Route: 048
     Dates: end: 20051028
  2. LOPID [Concomitant]
     Indication: BLOOD CHOLESTEROL
     Route: 065
  3. GLUCOPHAGE [Concomitant]
     Route: 065

REACTIONS (41)
  - ACUTE MYOCARDIAL INFARCTION [None]
  - ALVEOLAR OSTEITIS [None]
  - ANXIETY [None]
  - ATRIAL FIBRILLATION [None]
  - BLADDER CANCER [None]
  - CARDIOMYOPATHY [None]
  - DEATH [None]
  - DELUSION [None]
  - DEMENTIA [None]
  - DENTAL CARIES [None]
  - DEPRESSION [None]
  - DIABETES MELLITUS [None]
  - DIABETIC COMA [None]
  - DRUG ADMINISTRATION ERROR [None]
  - FACE INJURY [None]
  - FALL [None]
  - FISTULA [None]
  - HEAD INJURY [None]
  - HUMERUS FRACTURE [None]
  - HYPOGLYCAEMIA [None]
  - IMPAIRED HEALING [None]
  - JAW FRACTURE [None]
  - JOINT RANGE OF MOTION DECREASED [None]
  - LIP AND/OR ORAL CAVITY CANCER [None]
  - LOSS OF CONSCIOUSNESS [None]
  - LUNG NEOPLASM MALIGNANT [None]
  - MALNUTRITION [None]
  - MOUTH INJURY [None]
  - OEDEMA MOUTH [None]
  - ORAL HERPES [None]
  - ORAL INFECTION [None]
  - ORAL INTAKE REDUCED [None]
  - ORAL PAIN [None]
  - OSTEOMYELITIS [None]
  - OSTEONECROSIS [None]
  - PAIN [None]
  - PNEUMONIA [None]
  - POLYNEUROPATHY [None]
  - SWELLING [None]
  - TRISMUS [None]
  - WOUND [None]
